FAERS Safety Report 11897176 (Version 1)
Quarter: 2016Q1

REPORT INFORMATION
  Report Type: Spontaneous
  Country: US (occurrence: US)
  Receive Date: 20160107
  Receipt Date: 20160107
  Transmission Date: 20160526
  Serious: Yes (Death)
  Sender: FDA-Public Use
  Company Number: US-GALENA BIOPHARMA-1046276

PATIENT
  Age: 58 Year
  Sex: Female

DRUGS (1)
  1. ABSTRAL [Suspect]
     Active Substance: FENTANYL CITRATE
     Route: 060
     Dates: start: 20131213

REACTIONS (1)
  - Death [Fatal]

NARRATIVE: CASE EVENT DATE: 20150126
